FAERS Safety Report 4976237-X (Version None)
Quarter: 2006Q2

REPORT INFORMATION
  Report Type: 
  Country: None (occurrence: None)
  Receive Date: 20060419
  Receipt Date: 20060329
  Transmission Date: 20061013
  Serious: Yes (Other)
  Sender: FDA-Public Use
  Company Number: PHBS2006JP04858

PATIENT
  Age: 52 Year
  Sex: Male

DRUGS (3)
  1. CYCLOSPORINE [Suspect]
     Indication: LIVER TRANSPLANT
     Route: 065
     Dates: start: 20040901
  2. INTERFERON ALFA-2B [Suspect]
     Indication: HEPATITIS C
     Route: 042
     Dates: start: 20050401
  3. REBETOL [Suspect]
     Indication: HEPATITIS C
     Route: 048
     Dates: start: 20050401

REACTIONS (5)
  - DIABETES MELLITUS [None]
  - HEPATITIS C [None]
  - KETOACIDOSIS [None]
  - KETOSIS [None]
  - NASOPHARYNGITIS [None]
